FAERS Safety Report 5773289-4 (Version None)
Quarter: 2008Q2

REPORT INFORMATION
  Report Type: 
  Country: None (occurrence: None)
  Receive Date: 20080613
  Receipt Date: 20080613
  Transmission Date: 20081010
  Serious: Yes (Other)
  Sender: FDA-Public Use
  Company Number: None

PATIENT
  Age: 71 Year
  Sex: Female
  Weight: 83.9154 kg

DRUGS (1)
  1. HUMIRA [Suspect]
     Indication: ARTHROPATHY
     Dosage: 1 SHOT EVERY 14 DAYS SQ
     Route: 058
     Dates: start: 20061001, end: 20070228

REACTIONS (7)
  - ASTHENIA [None]
  - GASTROINTESTINAL DISORDER [None]
  - LUNG DISORDER [None]
  - MALAISE [None]
  - MOBILITY DECREASED [None]
  - RESPIRATORY DISORDER [None]
  - WEIGHT DECREASED [None]
